FAERS Safety Report 16535073 (Version 2)
Quarter: 2019Q3

REPORT INFORMATION
  Report Type: Spontaneous
  Country: US (occurrence: US)
  Receive Date: 20190705
  Receipt Date: 20190806
  Transmission Date: 20191004
  Serious: Yes (Other)
  Sender: FDA-Public Use
  Company Number: US-UCBSA-2019027270

PATIENT
  Age: 4 Year
  Sex: Male

DRUGS (3)
  1. BRIVIACT [Suspect]
     Active Substance: BRIVARACETAM
     Indication: SEIZURE
     Dosage: 32 MILLIGRAM, 2X/DAY (BID)
     Route: 048
     Dates: start: 20190227
  2. BRIVIACT [Suspect]
     Active Substance: BRIVARACETAM
     Indication: GENERALISED TONIC-CLONIC SEIZURE
     Dosage: 37 MILLIGRAM, 2X/DAY (BID)
     Route: 048
     Dates: start: 201904
  3. DIAZEPAM. [Concomitant]
     Active Substance: DIAZEPAM
     Indication: PRODUCT USED FOR UNKNOWN INDICATION
     Dosage: 7.5MG
     Route: 054
     Dates: start: 201810

REACTIONS (4)
  - Drug ineffective [Unknown]
  - Irritability [Not Recovered/Not Resolved]
  - Somnambulism [Not Recovered/Not Resolved]
  - Behaviour disorder [Not Recovered/Not Resolved]

NARRATIVE: CASE EVENT DATE: 2019
